FAERS Safety Report 20471258 (Version 1)
Quarter: 2022Q1

REPORT INFORMATION
  Report Type: Report from Study
  Country: US (occurrence: US)
  Receive Date: 20220214
  Receipt Date: 20220214
  Transmission Date: 20220423
  Serious: No
  Sender: FDA-Public Use
  Company Number: US-TG THERAPEUTICS INC.-TGT002286

PATIENT
  Sex: Female

DRUGS (1)
  1. UMBRALISIB [Suspect]
     Active Substance: UMBRALISIB
     Indication: Product used for unknown indication
     Dosage: 800 MILLIGRAM, QD

REACTIONS (2)
  - Clostridium difficile infection [Unknown]
  - Malaise [Unknown]
